FAERS Safety Report 9269043 (Version 2)
Quarter: 2013Q2

REPORT INFORMATION
  Report Type: Spontaneous
  Country: US (occurrence: US)
  Receive Date: 20130503
  Receipt Date: 20130521
  Transmission Date: 20140414
  Serious: No
  Sender: FDA-Public Use
  Company Number: US-009507513-1305USA000820

PATIENT
  Sex: Female

DRUGS (3)
  1. VICTRELIS [Suspect]
     Dosage: 4 CAPSULES(800MG) THREE TIMES A DAY(EVERY 7-9HOURS) START ON WEEK 5
     Route: 048
  2. PEGASYS [Suspect]
  3. REBETOL [Suspect]
     Route: 048

REACTIONS (3)
  - Anorectal discomfort [Unknown]
  - Anal pruritus [Unknown]
  - Dysgeusia [Not Recovered/Not Resolved]
